FAERS Safety Report 4778034-7 (Version None)
Quarter: 2005Q3

REPORT INFORMATION
  Report Type: 
  Country: None (occurrence: None)
  Receive Date: 20050923
  Receipt Date: 20050923
  Transmission Date: 20060218
  Serious: Yes (Other)
  Sender: FDA-Public Use
  Company Number: None

PATIENT
  Age: 50 Year
  Sex: Male
  Weight: 91.6 kg

DRUGS (8)
  1. FLUVASTATIN [Suspect]
  2. SERTRALINE HCL [Concomitant]
  3. RABEPRAZOLE NA [Concomitant]
  4. CODEINE 30/ACETAMINOPHEN [Concomitant]
  5. DICLOFENAC SODIUM [Concomitant]
  6. FLUNISOLIDE [Concomitant]
  7. LISINOPRIL [Concomitant]
  8. SILDENAFIL CITRATE [Concomitant]

REACTIONS (1)
  - DIARRHOEA [None]
